FAERS Safety Report 24729013 (Version 1)
Quarter: 2024Q4

REPORT INFORMATION
  Report Type: Spontaneous
  Country: SE (occurrence: SE)
  Receive Date: 20241213
  Receipt Date: 20241213
  Transmission Date: 20250114
  Serious: Yes (Hospitalization)
  Sender: NOVO NORDISK
  Company Number: SE-NOVOPROD-1331885

PATIENT
  Age: 70 Year
  Sex: Female
  Weight: 93 kg

DRUGS (10)
  1. OZEMPIC [Suspect]
     Active Substance: SEMAGLUTIDE
     Dosage: ONLY TOOK THAT DOSE ONCE BEFORE GOING BACK TO 0.25
     Dates: end: 202411
  2. OZEMPIC [Suspect]
     Active Substance: SEMAGLUTIDE
     Indication: Weight control
     Dosage: COUNTED 18 CLICKS TO GET 0.25 MG FOR 4 WEEKS
     Dates: start: 202410
  3. OZEMPIC [Suspect]
     Active Substance: SEMAGLUTIDE
     Dosage: 0.5 MG BY DOUBLING THE CLICKS
  4. XARELTO [Concomitant]
     Active Substance: RIVAROXABAN
     Dosage: LOW DOSE
  5. FELODIPINE [Concomitant]
     Active Substance: FELODIPINE
     Dosage: LOW DOSE
  6. NORMORIX MITE [Concomitant]
     Active Substance: AMILORIDE HYDROCHLORIDE\HYDROCHLOROTHIAZIDE
     Dosage: LOW DOSE
  7. SPIRONOLACTONE [Concomitant]
     Active Substance: SPIRONOLACTONE
     Dosage: LOW DOSE
  8. CANDESARTAN [Concomitant]
     Active Substance: CANDESARTAN
     Dosage: ALMOST HIGHEST DOSE
  9. SERTRALINE HYDROCHLORIDE [Concomitant]
     Active Substance: SERTRALINE HYDROCHLORIDE
     Dosage: 50 MG, QD
  10. ROSUVASTATIN [Concomitant]
     Active Substance: ROSUVASTATIN
     Dosage: 5 MG, QD

REACTIONS (11)
  - Cardiac fibrillation [Recovered/Resolved]
  - Depressed mood [Unknown]
  - Migraine with aura [Unknown]
  - Condition aggravated [Unknown]
  - Dry eye [Unknown]
  - Skin discolouration [Not Recovered/Not Resolved]
  - Visual impairment [Unknown]
  - Rash [Unknown]
  - Dizziness [Unknown]
  - Wrong technique in product usage process [Unknown]
  - Off label use [Unknown]

NARRATIVE: CASE EVENT DATE: 20241001
